FAERS Safety Report 7074938-3 (Version None)
Quarter: 2010Q4

REPORT INFORMATION
  Report Type: 
  Country: None (occurrence: None)
  Receive Date: 20101029
  Receipt Date: 20101015
  Transmission Date: 20110411
  Serious: Yes (Hospitalization, Other)
  Sender: FDA-Public Use
  Company Number: US-AMGEN-QUU438800

PATIENT

DRUGS (10)
  1. NPLATE [Suspect]
     Indication: IDIOPATHIC THROMBOCYTOPENIC PURPURA
     Dosage: UNK UNK, UNK
  2. NPLATE [Suspect]
     Dates: start: 20100331
  3. CORTICOSTEROID NOS [Concomitant]
     Dosage: UNK UNK, UNK
     Dates: start: 19900401
  4. PREGABALIN [Concomitant]
     Dosage: 25 MG, QD
  5. FUROSEMIDE [Concomitant]
     Dosage: 20 MG, QD
  6. ESOMEPRAZOLE MAGNESIUM [Concomitant]
     Dosage: 40 MG, QD
  7. FENOFIBRATE [Concomitant]
     Dosage: 72.5 MG, QD
  8. ATENOLOL [Concomitant]
     Dosage: 50 MG, BID
  9. IMMU-G [Concomitant]
     Dosage: UNK UNK, UNK
     Route: 042
  10. PREDNISONE [Concomitant]

REACTIONS (15)
  - CLOSTRIDIAL INFECTION [None]
  - DEEP VEIN THROMBOSIS [None]
  - DEMYELINATING POLYNEUROPATHY [None]
  - ENTEROCOCCAL INFECTION [None]
  - ENTEROCOCCAL SEPSIS [None]
  - FAILURE TO THRIVE [None]
  - HYDRONEPHROSIS [None]
  - HYPERTENSION [None]
  - HYPOXIA [None]
  - IMMUNOSUPPRESSION [None]
  - MALNUTRITION [None]
  - ORGANISING PNEUMONIA [None]
  - RENAL FAILURE [None]
  - URINARY RETENTION [None]
  - URINARY TRACT INFECTION [None]
